FAERS Safety Report 4485570-X (Version None)
Quarter: 2004Q4

REPORT INFORMATION
  Report Type: 
  Country: None (occurrence: None)
  Receive Date: 20041021
  Receipt Date: 20041013
  Transmission Date: 20050328
  Serious: Yes (Death)
  Sender: FDA-Public Use
  Company Number: USA-2004-0014883

PATIENT
  Age: 37 Year
  Sex: Female
  Weight: 59 kg

DRUGS (11)
  1. OXYCONTIN [Suspect]
  2. HYDROCODONE BITARTRATE (HYDROCODONE BITARTRATE) [Suspect]
  3. ETHANOL (ETHANOL) [Suspect]
  4. DIAZEPAM [Suspect]
  5. ACETAMINOPHEN [Suspect]
  6. IBUPROFEN [Suspect]
  7. CAFFEINE (CAFFEINE) [Suspect]
  8. PROPOXYPHENE (DEXTROPROPOXYPHENE) [Suspect]
  9. DIHYDROCODEINE/CAFFEINE/ACETAMINOPHEN (DIHYDROCODEINE, PARACETAMOL, CA [Suspect]
  10. CARBAMAZEPINE [Suspect]
  11. NICOTINE [Suspect]

REACTIONS (6)
  - ALCOHOL USE [None]
  - BRONCHOPNEUMONIA [None]
  - DRUG SCREEN POSITIVE [None]
  - HEAD INJURY [None]
  - HEPATIC FIBROSIS [None]
  - MULTIPLE DRUG OVERDOSE ACCIDENTAL [None]
